FAERS Safety Report 13906681 (Version 1)
Quarter: 2017Q3

REPORT INFORMATION
  Report Type: Spontaneous
  Country: JP (occurrence: JP)
  Receive Date: 20170825
  Receipt Date: 20170825
  Transmission Date: 20171127
  Serious: Yes (Death, Other)
  Sender: FDA-Public Use
  Company Number: JP-SA-2017SA153791

PATIENT
  Age: 65 Year
  Sex: Female

DRUGS (3)
  1. OXALIPLATIN. [Suspect]
     Active Substance: OXALIPLATIN
     Indication: COLON CANCER
     Dosage: FORM: INFUSION
     Route: 042
     Dates: start: 20160731
  2. OXALIPLATIN. [Suspect]
     Active Substance: OXALIPLATIN
     Indication: COLON CANCER
     Dosage: FORM: INFUSION
     Route: 042
  3. HYDROCORTISONE. [Concomitant]
     Active Substance: HYDROCORTISONE
     Route: 042

REACTIONS (3)
  - Cholangitis [Recovering/Resolving]
  - Pyrexia [Recovering/Resolving]
  - Altered state of consciousness [Recovering/Resolving]
